FAERS Safety Report 12783112 (Version 1)
Quarter: 2016Q3

REPORT INFORMATION
  Report Type: Spontaneous
  Country: US (occurrence: US)
  Receive Date: 20160927
  Receipt Date: 20160927
  Transmission Date: 20161109
  Serious: Yes (Other)
  Sender: FDA-Public Use
  Company Number: US-BEH-200814320

PATIENT
  Age: 16 Year
  Sex: Female

DRUGS (1)
  1. VIVAGLOBIN [Suspect]
     Active Substance: HUMAN IMMUNOGLOBULIN G
     Route: 058
     Dates: start: 200810

REACTIONS (7)
  - Limb discomfort [Unknown]
  - Peripheral coldness [Unknown]
  - Pain in extremity [Unknown]
  - Hot flush [Unknown]
  - Skin discolouration [Unknown]
  - Abasia [Unknown]
  - Infusion site reaction [Recovered/Resolved]

NARRATIVE: CASE EVENT DATE: 200810
